FAERS Safety Report 7214940-1 (Version None)
Quarter: 2011Q1

REPORT INFORMATION
  Report Type: 
  Country: None (occurrence: None)
  Receive Date: 20110107
  Receipt Date: 20100527
  Transmission Date: 20110831
  Serious: No
  Sender: FDA-Public Use
  Company Number: A0861713A

PATIENT
  Age: 74 Year
  Sex: Female

DRUGS (4)
  1. LOVAZA [Suspect]
     Indication: BLOOD CHOLESTEROL INCREASED
     Dosage: 1CAP TWICE PER DAY
     Route: 048
     Dates: start: 20100526
  2. MULTIVITAMIN [Concomitant]
  3. IMITREX [Concomitant]
  4. FOSAMAX [Concomitant]

REACTIONS (1)
  - ABDOMINAL DISCOMFORT [None]
